FAERS Safety Report 19609982 (Version 1)
Quarter: 2021Q3

REPORT INFORMATION
  Report Type: Report from Study
  Country: US (occurrence: US)
  Receive Date: 20210726
  Receipt Date: 20210726
  Transmission Date: 20211014
  Serious: Yes (Other)
  Sender: FDA-Public Use
  Company Number: US-KYOWAKIRIN-2021BKK012614

PATIENT

DRUGS (1)
  1. CRYSVITA [Suspect]
     Active Substance: BUROSUMAB-TWZA
     Indication: HEREDITARY HYPOPHOSPHATAEMIC RICKETS
     Dosage: 90 MG, EVERY 28 DAYS
     Route: 058
     Dates: start: 20190620

REACTIONS (4)
  - Musculoskeletal stiffness [Unknown]
  - Osteoarthritis [Unknown]
  - Spinal stenosis [Unknown]
  - Restless legs syndrome [Unknown]
